FAERS Safety Report 10731376 (Version 1)
Quarter: 2015Q1

REPORT INFORMATION
  Report Type: Spontaneous
  Country: US (occurrence: US)
  Receive Date: 20150122
  Receipt Date: 20150122
  Transmission Date: 20150721
  Serious: Yes (Death)
  Sender: FDA-Public Use
  Company Number: US-ASTRAZENECA-2015SE05366

PATIENT
  Age: 119 Day
  Sex: Male

DRUGS (1)
  1. SYNAGIS [Suspect]
     Active Substance: PALIVIZUMAB
     Indication: MULTIPLE PREGNANCY
     Route: 030
     Dates: start: 20141212, end: 20150109

REACTIONS (1)
  - Death [Fatal]

NARRATIVE: CASE EVENT DATE: 20150109
